FAERS Safety Report 7779409-4 (Version None)
Quarter: 2011Q3

REPORT INFORMATION
  Report Type: 
  Country: None (occurrence: None)
  Receive Date: 20110927
  Receipt Date: 20110922
  Transmission Date: 20111222
  Serious: No
  Sender: FDA-Public Use
  Company Number: US-BIOGENIDEC-2011BI036447

PATIENT
  Sex: Female

DRUGS (3)
  1. AVONEX [Suspect]
     Route: 030
     Dates: start: 20050301
  2. AVONEX [Suspect]
     Indication: MULTIPLE SCLEROSIS
     Route: 030
     Dates: start: 20041001
  3. AVONEX [Suspect]
     Route: 030
     Dates: start: 20080928

REACTIONS (2)
  - INJECTION SITE PAIN [None]
  - GENERAL PHYSICAL HEALTH DETERIORATION [None]
